FAERS Safety Report 12166738 (Version 6)
Quarter: 2016Q3

REPORT INFORMATION
  Report Type: Report from Study
  Country: CA (occurrence: CA)
  Receive Date: 20160310
  Receipt Date: 20160815
  Transmission Date: 20161109
  Serious: Yes (Death, Hospitalization, Other)
  Sender: FDA-Public Use
  Company Number: CA-ROCHE-1723751

PATIENT
  Age: 73 Year
  Sex: Female
  Weight: 76.6 kg

DRUGS (15)
  1. ESBRIET [Suspect]
     Active Substance: PIRFENIDONE
     Indication: IDIOPATHIC PULMONARY FIBROSIS
     Route: 048
     Dates: start: 20160124
  2. CLONAZEPAM. [Concomitant]
     Active Substance: CLONAZEPAM
     Route: 065
  3. NPH (INSULIN) [Concomitant]
     Dosage: 50 UNITS HS
     Route: 065
  4. ATROVENT [Concomitant]
     Active Substance: IPRATROPIUM BROMIDE
     Dosage: AS REQUIRED
     Route: 065
  5. METFORMIN [Concomitant]
     Active Substance: METFORMIN HYDROCHLORIDE
     Dosage: 2 TABS AM, 1 TAB NOON, 2 TABS SUPPER
     Route: 065
  6. MIRTAZAPINE TEVA [Concomitant]
     Active Substance: MIRTAZAPINE
     Dosage: 1.5 TABS HS
     Route: 065
  7. VENLAFAXINE XR [Concomitant]
     Active Substance: VENLAFAXINE HYDROCHLORIDE
     Route: 065
  8. SENNOSIDES. [Concomitant]
     Active Substance: SENNOSIDES
     Dosage: 3 TABS HS
     Route: 065
  9. ESBRIET [Suspect]
     Active Substance: PIRFENIDONE
     Route: 048
     Dates: start: 2016
  10. ESBRIET [Suspect]
     Active Substance: PIRFENIDONE
     Route: 048
     Dates: start: 2016, end: 2016
  11. RAMIPRIL. [Concomitant]
     Active Substance: RAMIPRIL
     Route: 065
  12. QUETIAPINE. [Concomitant]
     Active Substance: QUETIAPINE
     Dosage: HS
     Route: 065
  13. EZETROL [Concomitant]
     Active Substance: EZETIMIBE
     Route: 065
  14. PRAVASTATIN-TEVA [Concomitant]
     Dosage: HS
     Route: 065
  15. VENTOLIN [Concomitant]
     Active Substance: ALBUTEROL SULFATE
     Dosage: AS REQUIRED
     Route: 065

REACTIONS (5)
  - Fatigue [Unknown]
  - Blood glucose decreased [Unknown]
  - Death [Fatal]
  - Varices oesophageal [Not Recovered/Not Resolved]
  - Erythema [Not Recovered/Not Resolved]

NARRATIVE: CASE EVENT DATE: 201601
